FAERS Safety Report 9356376 (Version 1)
Quarter: 2013Q2

REPORT INFORMATION
  Report Type: Spontaneous
  Country: US (occurrence: US)
  Receive Date: 20130619
  Receipt Date: 20130619
  Transmission Date: 20140414
  Serious: Yes (Other)
  Sender: FDA-Public Use
  Company Number: US-ALLERGAN-1308621US

PATIENT
  Age: 85 Year
  Sex: Female

DRUGS (4)
  1. LUMIGAN? 0.01% [Suspect]
     Indication: GLAUCOMA
     Dosage: 2 GTT, QHS
     Route: 047
     Dates: start: 20130528, end: 20130529
  2. MUSCLE RELAXANTS [Concomitant]
     Indication: SPINAL COLUMN STENOSIS
     Dosage: UNK
     Dates: start: 2011
  3. ANTIVERT [Concomitant]
     Indication: MENIERE^S DISEASE
     Dosage: UNK UNK, PRN
     Route: 048
  4. BETA BLOCKING AGENTS [Concomitant]
     Indication: HYPERTENSION
     Dosage: UNK

REACTIONS (4)
  - Blindness unilateral [Not Recovered/Not Resolved]
  - Visual field defect [Not Recovered/Not Resolved]
  - Visual field defect [Not Recovered/Not Resolved]
  - Incorrect dose administered [Unknown]
